FAERS Safety Report 24612347 (Version 1)
Quarter: 2024Q4

REPORT INFORMATION
  Report Type: Spontaneous
  Country: IL (occurrence: IL)
  Receive Date: 20241113
  Receipt Date: 20241113
  Transmission Date: 20250115
  Serious: Yes (Death)
  Sender: STRIDES
  Company Number: IL-STRIDES ARCOLAB LIMITED-2024SP014519

PATIENT
  Age: 6 Year
  Sex: Male

DRUGS (2)
  1. METHOTREXATE [Suspect]
     Active Substance: METHOTREXATE
     Indication: Osteosarcoma
     Dosage: UNK
     Route: 065
  2. METHOTREXATE [Suspect]
     Active Substance: METHOTREXATE
     Indication: Metastases to lung

REACTIONS (4)
  - Drug ineffective [Fatal]
  - Malignant neoplasm progression [Fatal]
  - Toxicity to various agents [Unknown]
  - Mucosal inflammation [Unknown]
